FAERS Safety Report 10023541 (Version 1)
Quarter: 2014Q1

REPORT INFORMATION
  Report Type: Spontaneous
  Country: US (occurrence: None)
  Receive Date: 20140106
  Receipt Date: 20140106
  Transmission Date: 20141002
  Serious: Yes (Other)
  Sender: FDA-Public Use
  Company Number: NXG-13-019

PATIENT
  Sex: Female

DRUGS (1)
  1. FIORICET [Suspect]

REACTIONS (2)
  - Abnormal behaviour [None]
  - Feeling abnormal [None]
